FAERS Safety Report 7407565-6 (Version None)
Quarter: 2011Q2

REPORT INFORMATION
  Report Type: 
  Country: None (occurrence: None)
  Receive Date: 20110406
  Receipt Date: 20110406
  Transmission Date: 20111010
  Serious: Yes (Hospitalization)
  Sender: FDA-Public Use
  Company Number: None

PATIENT
  Sex: Male
  Weight: 77.9 kg

DRUGS (4)
  1. PEG-L-ASPARAGINASE (K-H) [Suspect]
     Dosage: 4950 UNIT
  2. VINCRISTINE SULFATE [Suspect]
     Dosage: 2 MG
  3. CYCLOPHOSPHAMIDE [Suspect]
     Dosage: 1930 MG
  4. CYTARABINE [Suspect]
     Dosage: 2 MG

REACTIONS (1)
  - PANCREATITIS [None]
